FAERS Safety Report 22306602 (Version 2)
Quarter: 2023Q2

REPORT INFORMATION
  Report Type: Report from Study
  Country: GR (occurrence: GR)
  Receive Date: 20230511
  Receipt Date: 20230529
  Transmission Date: 20230722
  Serious: Yes (Hospitalization)
  Sender: FDA-Public Use
  Company Number: GR-BIOGEN-2023BI01203804

PATIENT
  Sex: Female
  Weight: 25 kg

DRUGS (1)
  1. SPINRAZA [Suspect]
     Active Substance: NUSINERSEN
     Indication: Spinal muscular atrophy
     Route: 050
     Dates: start: 20180116

REACTIONS (1)
  - Scoliosis [Recovered/Resolved]

NARRATIVE: CASE EVENT DATE: 20180723
